FAERS Safety Report 9981441 (Version 1)
Quarter: 2014Q1

REPORT INFORMATION
  Report Type: Spontaneous
  Country: US (occurrence: US)
  Receive Date: 20140307
  Receipt Date: 20140307
  Transmission Date: 20141002
  Serious: Yes (Hospitalization)
  Sender: FDA-Public Use
  Company Number: US-BRISTOL-MYERS SQUIBB COMPANY-20340964

PATIENT
  Age: 46 Year
  Sex: Male
  Weight: 97.5 kg

DRUGS (2)
  1. COUMADIN TABS [Suspect]
     Dates: start: 1996
  2. METOPROLOL [Concomitant]

REACTIONS (4)
  - Road traffic accident [Unknown]
  - Aortic valve replacement [Unknown]
  - Contusion [Unknown]
  - Urticaria [Unknown]
